FAERS Safety Report 16905784 (Version 6)
Quarter: 2020Q2

REPORT INFORMATION
  Report Type: Report from Study
  Country: US (occurrence: US)
  Receive Date: 20191010
  Receipt Date: 20200618
  Transmission Date: 20200713
  Serious: Yes (Death, Hospitalization, Other)
  Sender: FDA-Public Use
  Company Number: US-ACTELION-A-NJ2019-196630

PATIENT
  Age: 57 Year
  Sex: Female

DRUGS (26)
  1. FAMOTIDINE. [Concomitant]
     Active Substance: FAMOTIDINE
  2. ASPIRIN. [Concomitant]
     Active Substance: ASPIRIN
  3. DIGOXIN. [Concomitant]
     Active Substance: DIGOXIN
     Dosage: 125 MCG, QD
     Dates: start: 201807
  4. NIFEDIPINE. [Concomitant]
     Active Substance: NIFEDIPINE
     Dosage: 30 MG, QD
     Dates: start: 201807
  5. CELLCEPT [Concomitant]
     Active Substance: MYCOPHENOLATE MOFETIL\MYCOPHENOLATE MOFETIL HYDROCHLORIDE
  6. PREDNISONE. [Concomitant]
     Active Substance: PREDNISONE
  7. LIPITOR [Concomitant]
     Active Substance: ATORVASTATIN CALCIUM
  8. VENTOLIN HFA [Concomitant]
     Active Substance: ALBUTEROL SULFATE
  9. SILDENAFIL. [Concomitant]
     Active Substance: SILDENAFIL
     Dosage: 20 MG, TID
     Dates: start: 201807
  10. BENADRYL [Concomitant]
     Active Substance: DIPHENHYDRAMINE HYDROCHLORIDE
  11. ZOFRAN [Concomitant]
     Active Substance: ONDANSETRON HYDROCHLORIDE
  12. COLLAGENASE SANTYL [Concomitant]
     Active Substance: COLLAGENASE CLOSTRIDIUM HISTOLYTICUM
     Route: 061
  13. PROBIATA [Concomitant]
  14. VITRON C [Concomitant]
     Active Substance: ASCORBIC ACID\IRON
  15. OPSUMIT [Suspect]
     Active Substance: MACITENTAN
     Indication: PULMONARY HYPERTENSION
     Dosage: 10 MG, QD
     Route: 048
     Dates: start: 20180728, end: 202005
  16. K-TAB [Concomitant]
     Active Substance: POTASSIUM CHLORIDE
  17. CLEARLAX [Concomitant]
     Active Substance: POLYETHYLENE GLYCOL 3350
  18. TORSEMIDE. [Concomitant]
     Active Substance: TORSEMIDE
  19. PROTONIX [Concomitant]
     Active Substance: PANTOPRAZOLE SODIUM
  20. SENNA ACUTIFOLIA [Concomitant]
  21. RANITIDINE. [Concomitant]
     Active Substance: RANITIDINE
  22. FLONASE [Concomitant]
     Active Substance: FLUTICASONE PROPIONATE
  23. ATORVASTATIN [Concomitant]
     Active Substance: ATORVASTATIN
     Dosage: 80 MG, QPM
     Dates: start: 201807
  24. PENTOXIFYLLINE. [Concomitant]
     Active Substance: PENTOXIFYLLINE
  25. PERCOCET [Concomitant]
     Active Substance: ACETAMINOPHEN\OXYCODONE HYDROCHLORIDE
  26. MIRALAX [Concomitant]
     Active Substance: POLYETHYLENE GLYCOL 3350

REACTIONS (24)
  - Metabolic acidosis [Fatal]
  - Pulmonary embolism [Fatal]
  - Ischaemia [Unknown]
  - Gangrene [Unknown]
  - Skin ulcer [Unknown]
  - Troponin increased [Fatal]
  - Angiogram [Unknown]
  - Angioplasty [Unknown]
  - Leg amputation [Recovered/Resolved]
  - Rhinorrhoea [Unknown]
  - Respiratory failure [Fatal]
  - Ischaemic skin ulcer [Unknown]
  - Back pain [Unknown]
  - Toe amputation [Unknown]
  - Peripheral vascular disorder [Recovered/Resolved]
  - Acute myocardial infarction [Fatal]
  - Cardiac arrest [Fatal]
  - Dyspnoea [Unknown]
  - Cellulitis [Unknown]
  - Acute kidney injury [Unknown]
  - Hypoaesthesia [Unknown]
  - Cough [Unknown]
  - Neck pain [Unknown]
  - Ear pain [Unknown]

NARRATIVE: CASE EVENT DATE: 20190922
